FAERS Safety Report 21632308 (Version 1)
Quarter: 2022Q4

REPORT INFORMATION
  Report Type: Spontaneous
  Country: US (occurrence: None)
  Receive Date: 20221122
  Receipt Date: 20221122
  Transmission Date: 20230113
  Serious: Yes (Hospitalization)
  Sender: FDA-Public Use
  Company Number: None

PATIENT
  Age: 83 Year
  Sex: Male
  Weight: 79.2 kg

DRUGS (15)
  1. MEKTOVI [Suspect]
     Active Substance: BINIMETINIB
     Indication: Malignant melanoma
     Dosage: FREQUENCY : TWICE A DAY;?
     Route: 048
  2. BRAFTOVI [Suspect]
     Active Substance: ENCORAFENIB
     Indication: Malignant melanoma
     Dosage: FREQUENCY : DAILY;?
     Route: 048
  3. BENEFIBER [Concomitant]
     Active Substance: STARCH, WHEAT
  4. PRASTERONE [Concomitant]
     Active Substance: PRASTERONE
  5. DORZOLAMIDDE [Concomitant]
  6. IPRATROPIUM [Concomitant]
     Active Substance: IPRATROPIUM
  7. LINZESS [Concomitant]
     Active Substance: LINACLOTIDE
  8. LIPITOR [Concomitant]
     Active Substance: ATORVASTATIN CALCIUM
  9. MOTEGRITY [Concomitant]
     Active Substance: PRUCALOPRIDE SUCCINATE
  10. OMEGA [Concomitant]
  11. PROBIOTICS NOS [Concomitant]
     Active Substance: PROBIOTICS NOS
  12. TRAVATAN Z [Concomitant]
     Active Substance: TRAVOPROST
  13. ULTRA PROSTATE FORMULA [Concomitant]
  14. VITAMIN B12 [Concomitant]
     Active Substance: CYANOCOBALAMIN
  15. VITAMIN D [Concomitant]
     Active Substance: VITAMIN D NOS

REACTIONS (2)
  - Hospitalisation [None]
  - Therapy interrupted [None]

NARRATIVE: CASE EVENT DATE: 20221118
